FAERS Safety Report 4832409-6 (Version None)
Quarter: 2005Q4

REPORT INFORMATION
  Report Type: 
  Country: None (occurrence: None)
  Receive Date: 20051121
  Receipt Date: 20051013
  Transmission Date: 20060501
  Serious: Yes (Death, Other)
  Sender: FDA-Public Use
  Company Number: AU-NOVOPROD-247763

PATIENT
  Age: 44 Year
  Sex: Male
  Weight: 67 kg

DRUGS (4)
  1. NOVOSEVEN [Suspect]
     Indication: HAEMORRHAGE
     Dosage: 7.2 MG, SINGLE
     Dates: start: 20050616
  2. TRASYLOL [Concomitant]
  3. HEPARIN [Concomitant]
  4. WARFARIN [Concomitant]

REACTIONS (4)
  - GRAFT DYSFUNCTION [None]
  - HAEMORRHAGE [None]
  - INTRACARDIAC THROMBUS [None]
  - PULMONARY OEDEMA [None]
